FAERS Safety Report 5071792-6 (Version None)
Quarter: 2006Q3

REPORT INFORMATION
  Report Type: 
  Country: None (occurrence: None)
  Receive Date: 20060804
  Receipt Date: 20060724
  Transmission Date: 20061208
  Serious: Yes (Other)
  Sender: FDA-Public Use
  Company Number: PHBS2006JP11146

PATIENT

DRUGS (1)
  1. VOLTAREN [Suspect]
     Indication: PYREXIA
     Dosage: 50 MG/DAY
     Route: 054

REACTIONS (1)
  - SHOCK [None]
